FAERS Safety Report 20822416 (Version 5)
Quarter: 2022Q2

REPORT INFORMATION
  Report Type: Spontaneous
  Country: US (occurrence: US)
  Receive Date: 20220512
  Receipt Date: 20220608
  Transmission Date: 20220721
  Serious: No
  Sender: FDA-Public Use
  Company Number: US-NOVARTISTESTPH-NVSC2022US110135

PATIENT
  Sex: Female

DRUGS (2)
  1. TOBREX [Suspect]
     Active Substance: TOBRAMYCIN
     Indication: Product used for unknown indication
     Dosage: UNK (3.5 GM, DROPS)
     Route: 065
  2. TOBREX [Suspect]
     Active Substance: TOBRAMYCIN
     Dosage: UNK
     Route: 065

REACTIONS (5)
  - Eye swelling [Unknown]
  - Eye pruritus [Unknown]
  - Swelling of eyelid [Unknown]
  - Hypersensitivity [Unknown]
  - Erythema of eyelid [Unknown]
